FAERS Safety Report 15526927 (Version 3)
Quarter: 2018Q4

REPORT INFORMATION
  Report Type: Spontaneous
  Country: FR (occurrence: FR)
  Receive Date: 20181020
  Receipt Date: 20181206
  Transmission Date: 20190205
  Serious: Yes (Hospitalization, Other)
  Sender: FDA-Public Use
  Company Number: FR-AUROBINDO-AUR-APL-2018-050735

PATIENT
  Age: 64 Year
  Sex: Male

DRUGS (11)
  1. MACROGOL 4000 MYLAN [Suspect]
     Active Substance: POLYETHYLENE GLYCOL 4000
     Indication: CONSTIPATION
     Dosage: 4 DF,2  BAGS OF 13 G MATNI AND MIDI
     Route: 048
     Dates: start: 20180915
  2. CEFTRIAXONE                        /00672202/ [Suspect]
     Active Substance: CEFTRIAXONE
     Indication: PYELONEPHRITIS ACUTE
     Dosage: 1 GRAM, DAILY
     Route: 042
     Dates: start: 20180914, end: 20180917
  3. MORPHINE AGUETTANT [Suspect]
     Active Substance: MORPHINE HYDROCHLORIDE
     Indication: ANALGESIC INTERVENTION SUPPORTIVE THERAPY
     Dosage: 30 MG, DAILY,30MG PER 24H BOLUS OF 3 MG (MAX3/DAY)
     Route: 042
     Dates: start: 20180920, end: 20180927
  4. NEFOPAM MYLAN [Suspect]
     Active Substance: NEFOPAM
     Indication: ANALGESIC INTERVENTION SUPPORTIVE THERAPY
     Dosage: 20 MG, AS NECESSARY, APPROXIMATELY 2 TAKEN PER DAY BY THE PATIENT
     Route: 042
     Dates: start: 20180914, end: 20180920
  5. SKENAN [Suspect]
     Active Substance: MORPHINE SULFATE
     Indication: ANALGESIC INTERVENTION SUPPORTIVE THERAPY
     Dosage: 60 MG, DAILY,30 MG MOR AND EVE
     Route: 048
     Dates: start: 20180914
  6. NEBIVOLOL SANDOZ [Concomitant]
     Active Substance: NEBIVOLOL
     Indication: HYPERTENSION
     Dosage: 2.5 MG, DAILY, THE MORNING
     Route: 048
  7. DOLIPRANE [Suspect]
     Active Substance: ACETAMINOPHEN
     Indication: ANALGESIC INTERVENTION SUPPORTIVE THERAPY
     Dosage: 4 GRAM, DAILY
     Route: 048
     Dates: start: 20180914
  8. LOVENOX [Suspect]
     Active Substance: ENOXAPARIN SODIUM
     Indication: THROMBOSIS PROPHYLAXIS
     Dosage: 4000 IU, DAILY,4000 UI AT 20H
     Route: 058
     Dates: start: 20180914
  9. GABAPENTIN ARROW [Suspect]
     Active Substance: GABAPENTIN
     Indication: NEURALGIA
     Dosage: 900 MILLIGRAM, DAILY
     Route: 048
     Dates: start: 20180916, end: 20180920
  10. AMOXICILLINE PANPHARMA [Suspect]
     Active Substance: AMOXICILLIN
     Indication: INTERVERTEBRAL DISCITIS
     Dosage: 12 GRAM, DAILY
     Route: 042
     Dates: start: 20180914
  11. ACTISKENAN [Suspect]
     Active Substance: MORPHINE SULFATE
     Indication: ANALGESIC INTERVENTION SUPPORTIVE THERAPY
     Dosage: 10 MG,AS NECESSARY,10 MG IF NEEDED, 40 MG DAILY
     Route: 048
     Dates: start: 20180914

REACTIONS (1)
  - Hepatitis cholestatic [Recovering/Resolving]

NARRATIVE: CASE EVENT DATE: 20180920
